FAERS Safety Report 8406686-9 (Version None)
Quarter: 2012Q2

REPORT INFORMATION
  Report Type: 
  Country: None (occurrence: None)
  Receive Date: 20120604
  Receipt Date: 20120524
  Transmission Date: 20120825
  Serious: Yes (Hospitalization)
  Sender: FDA-Public Use
  Company Number: US-SANOFI-AVENTIS-2011SA081601

PATIENT
  Age: 50 Year
  Sex: Male

DRUGS (1)
  1. ARAVA [Suspect]
     Indication: RHEUMATOID ARTHRITIS
     Route: 048
     Dates: start: 20111020, end: 20111021

REACTIONS (5)
  - HOSPITALISATION [None]
  - OEDEMA MOUTH [None]
  - LIP SWELLING [None]
  - DRUG HYPERSENSITIVITY [None]
  - CHEILITIS [None]
